FAERS Safety Report 8512606-9 (Version None)
Quarter: 2012Q2

REPORT INFORMATION
  Report Type: 
  Country: None (occurrence: None)
  Receive Date: 20120405
  Receipt Date: 20080918
  Transmission Date: 20120825
  Serious: Yes (Hospitalization, Disabling)
  Sender: FDA-Public Use
  Company Number: PHEH2008US08389

PATIENT
  Sex: Female

DRUGS (1)
  1. RECLAST [Suspect]
     Dosage: 5 MG, ONCE SINGLE USE, INFUSION
     Dates: start: 20080715, end: 20080715

REACTIONS (2)
  - ARTHRALGIA [None]
  - BACK PAIN [None]
